FAERS Safety Report 10529809 (Version 1)
Quarter: 2014Q4

REPORT INFORMATION
  Report Type: Spontaneous
  Country: US (occurrence: None)
  Receive Date: 20141020
  Receipt Date: 20141020
  Transmission Date: 20150528
  Serious: Yes (Hospitalization, Other)
  Sender: FDA-Public Use
  Company Number: None

PATIENT
  Age: 37 Year
  Sex: Female
  Weight: 155 kg

DRUGS (10)
  1. BORRELIA [Suspect]
     Active Substance: LIPOPROTEIN OUTER SURFACE A BORRELIA BURGDORFERI ANTIGEN\LYME DISEASE VACCINE RECOMBINANT OSPA
     Indication: LYME DISEASE
     Dosage: 15 X TO 1000X 1 VIAL UNDER (DROPS) TONGUE, EVERY 3 DAYS, BY MOUTH - HOLD UNDER TONGUE + SWALLOW
     Dates: start: 20140505, end: 20140626
  2. MAGNESIUM [Concomitant]
     Active Substance: MAGNESIUM
  3. FLEXERIL [Concomitant]
     Active Substance: CYCLOBENZAPRINE HYDROCHLORIDE
  4. ZYRTEC [Concomitant]
     Active Substance: CETIRIZINE HYDROCHLORIDE
  5. PROGESTERON CREAM/HORMONES [Concomitant]
  6. C VITAMIN [Concomitant]
  7. B VITAMINS [Concomitant]
  8. IRON [Concomitant]
     Active Substance: IRON
  9. MULTIVITAMIN [Concomitant]
     Active Substance: VITAMINS
  10. ZINC [Concomitant]
     Active Substance: ZINC\ZINC CHLORIDE

REACTIONS (3)
  - Palpitations [None]
  - Transient ischaemic attack [None]
  - Malaise [None]

NARRATIVE: CASE EVENT DATE: 20140626
